FAERS Safety Report 16691161 (Version 1)
Quarter: 2019Q3

REPORT INFORMATION
  Report Type: Report from Study
  Country: BR (occurrence: BR)
  Receive Date: 20190812
  Receipt Date: 20190812
  Transmission Date: 20191004
  Serious: Yes (Hospitalization)
  Sender: FDA-Public Use
  Company Number: BR-BIOGEN-2019BI00766269

PATIENT
  Sex: Female

DRUGS (2)
  1. AVONEX [Suspect]
     Active Substance: INTERFERON BETA-1A
     Indication: MULTIPLE SCLEROSIS
     Route: 030
     Dates: start: 2004, end: 2017
  2. GILENYA [Concomitant]
     Active Substance: FINGOLIMOD HYDROCHLORIDE
     Indication: PRODUCT USED FOR UNKNOWN INDICATION
     Route: 065
     Dates: start: 2017, end: 2017

REACTIONS (8)
  - Hemiparesis [Unknown]
  - Alopecia [Recovered/Resolved]
  - Treatment failure [Unknown]
  - Multiple sclerosis relapse [Recovered/Resolved]
  - Abdominal pain upper [Recovered/Resolved]
  - Memory impairment [Not Recovered/Not Resolved]
  - Visual impairment [Recovered/Resolved]
  - Urinary tract infection [Unknown]

NARRATIVE: CASE EVENT DATE: 2011
